FAERS Safety Report 20525792 (Version 1)
Quarter: 2022Q1

REPORT INFORMATION
  Report Type: Spontaneous
  Country: CA (occurrence: CA)
  Receive Date: 20220228
  Receipt Date: 20220228
  Transmission Date: 20220423
  Serious: Yes (Other)
  Sender: FDA-Public Use
  Company Number: CA-TEVA-2022-CA-2004003

PATIENT
  Age: 86 Year
  Sex: Female

DRUGS (8)
  1. AZATHIOPRINE [Suspect]
     Active Substance: AZATHIOPRINE
     Indication: Sjogren^s syndrome
     Dosage: 50 MILLIGRAM DAILY;
     Route: 065
  2. AZATHIOPRINE [Suspect]
     Active Substance: AZATHIOPRINE
     Dosage: 2.0833 MILLIGRAM DAILY;
     Route: 065
  3. PREDNISOLONE [Suspect]
     Active Substance: PREDNISOLONE
     Indication: Prophylaxis against transplant rejection
     Route: 061
  4. PREDNISOLONE [Suspect]
     Active Substance: PREDNISOLONE
     Route: 061
  5. PREDNISOLONE [Suspect]
     Active Substance: PREDNISOLONE
     Route: 061
  6. LOTEPREDNOL ETABONATE [Suspect]
     Active Substance: LOTEPREDNOL ETABONATE
     Indication: Corneal oedema
     Route: 065
  7. TACROLIMUS [Suspect]
     Active Substance: TACROLIMUS
     Indication: Prophylaxis against transplant rejection
     Dosage: .4 PERCENT DAILY;
     Route: 061
  8. BEVACIZUMAB [Concomitant]
     Active Substance: BEVACIZUMAB
     Indication: Age-related macular degeneration

REACTIONS (3)
  - Disease recurrence [Recovered/Resolved]
  - Keratitis fungal [Recovered/Resolved]
  - Off label use [Recovered/Resolved]
